FAERS Safety Report 8820355 (Version 1)
Quarter: 2012Q4

REPORT INFORMATION
  Report Type: Report from Study
  Country: US (occurrence: US)
  Receive Date: 20121001
  Receipt Date: 20121001
  Transmission Date: 20130627
  Serious: No
  Sender: FDA-Public Use
  Company Number: US-009507513-1209USA007980

PATIENT
  Sex: Female

DRUGS (1)
  1. ETONOGESTREL IMPLANT- IMPLANON NEXT [Suspect]
     Dosage: UNK
     Dates: start: 20120822

REACTIONS (2)
  - Medical device complication [Unknown]
  - No adverse event [Unknown]
